FAERS Safety Report 21385426 (Version 1)
Quarter: 2022Q3

REPORT INFORMATION
  Report Type: Spontaneous
  Country: US (occurrence: US)
  Receive Date: 20220928
  Receipt Date: 20220928
  Transmission Date: 20221027
  Serious: No
  Sender: FDA-Public Use
  Company Number: US-PFIZER INC-202201188630

PATIENT
  Age: 87 Year
  Sex: Male
  Weight: 86.64 kg

DRUGS (2)
  1. PAXLOVID [Suspect]
     Active Substance: NIRMATRELVIR\RITONAVIR
     Indication: COVID-19 treatment
     Dosage: 6 DF, DAILY (RECEIVED ENOUGH FOR THIRTY DOSES PAXLOVID)
     Dates: start: 20220925
  2. LOVASTATIN [Suspect]
     Active Substance: LOVASTATIN
     Indication: Blood cholesterol abnormal
     Dosage: 40MG PILL ONCE DAY

REACTIONS (1)
  - Contraindicated product prescribed [Unknown]
